FAERS Safety Report 6551520-5 (Version None)
Quarter: 2010Q1

REPORT INFORMATION
  Report Type: 
  Country: None (occurrence: None)
  Receive Date: 20100120
  Receipt Date: 20100106
  Transmission Date: 20100710
  Serious: No
  Sender: FDA-Public Use
  Company Number: 003729

PATIENT

DRUGS (1)
  1. CERTOLIZUMAB PEGOL (CERTOLIZUMAB PEGOL) [Suspect]
     Indication: CROHN'S DISEASE
     Dosage: (TWO UNSPECIFIED DOSES ADMINISTERED SUBCUTANEOUS)
     Route: 058

REACTIONS (4)
  - CONDITION AGGRAVATED [None]
  - DRUG INTOLERANCE [None]
  - NO THERAPEUTIC RESPONSE [None]
  - PSORIASIS [None]
